FAERS Safety Report 4607054-8 (Version None)
Quarter: 2005Q1

REPORT INFORMATION
  Report Type: 
  Country: None (occurrence: None)
  Receive Date: 20050310
  Receipt Date: 20050301
  Transmission Date: 20050727
  Serious: Yes (Other)
  Sender: FDA-Public Use
  Company Number: 2005036506

PATIENT
  Age: 76 Year
  Sex: Female
  Weight: 71.2147 kg

DRUGS (9)
  1. NEURONTIN [Suspect]
     Indication: NEUROPATHY PERIPHERAL
     Dosage: 2400 MG (800 MG, 3 IN 1 D), ORAL; 7-8 YEARS AGO
     Route: 048
     Dates: end: 20050101
  2. GABAPENTIN [Suspect]
     Indication: NEUROPATHY PERIPHERAL
     Dosage: 2400 MG (800 MG,3 IN 1 D), ORAL
     Route: 048
     Dates: start: 20050101
  3. VERAPAMIL HCL [Concomitant]
  4. HYDROCHLOROTHIAZIDE [Concomitant]
  5. CONJUGATED ESTROGENS [Concomitant]
  6. MULTIVITAMINS (ASCORBIC ACID, ERGOCALCIFEROL, FOLIC ACID, NICOTINAMIDE [Concomitant]
  7. LEKOVIT CA (CALCIUM CARBONATE, COLECALCIFEROL) [Concomitant]
  8. OMEPRAZOLE [Concomitant]
  9. DRUG, UNSPECIFIED (DRUG, UNSPECIFIED) [Concomitant]

REACTIONS (6)
  - BLOOD CHOLESTEROL INCREASED [None]
  - DRUG EFFECT DECREASED [None]
  - GALLBLADDER OPERATION [None]
  - INADEQUATE ANALGESIA [None]
  - INSOMNIA [None]
  - PHARMACEUTICAL PRODUCT COMPLAINT [None]
